FAERS Safety Report 12928905 (Version 2)
Quarter: 2016Q4

REPORT INFORMATION
  Report Type: Spontaneous
  Country: FR (occurrence: FR)
  Receive Date: 20161110
  Receipt Date: 20161122
  Transmission Date: 20170207
  Serious: Yes (Hospitalization, Other)
  Sender: FDA-Public Use
  Company Number: FR-009507513-1611FRA002646

PATIENT
  Age: 37 Year
  Sex: Male

DRUGS (11)
  1. MINIRIN [Suspect]
     Active Substance: DESMOPRESSIN ACETATE
     Indication: URINARY TRACT DISORDER
     Dosage: 120 MICROGRAM, QD
     Route: 048
     Dates: end: 20161001
  2. FOLIC ACID. [Suspect]
     Active Substance: FOLIC ACID
     Indication: VITAMIN SUPPLEMENTATION
     Dosage: 5 MG, TWICE A WEEK (DAILY DOSE REPORTED AS AS^ 1.4286 MG^)
     Route: 048
  3. SERETIDE [Suspect]
     Active Substance: FLUTICASONE PROPIONATE\SALMETEROL XINAFOATE
     Indication: PULMONARY SARCOIDOSIS
     Dosage: 1 DF, BID (ALSO REPORTED AS ^1 PUFF IN THE MORNING AND EVENING^); STRENGTH: 250/50 MICROGRAM/DOSE
     Route: 055
     Dates: end: 20161001
  4. NOXAFIL [Suspect]
     Active Substance: POSACONAZOLE
     Indication: ASPERGILLUS INFECTION
     Dosage: 500 MG, QD
     Route: 048
     Dates: end: 20161001
  5. MECIR [Suspect]
     Active Substance: TAMSULOSIN HYDROCHLORIDE
     Indication: URINARY TRACT DISORDER
     Dosage: 1 DF (0.4 MG), QD
     Route: 048
     Dates: end: 20161001
  6. CANCIDAS [Suspect]
     Active Substance: CASPOFUNGIN ACETATE
     Dosage: UNK
     Route: 042
     Dates: start: 20161007
  7. BACTRIM [Suspect]
     Active Substance: SULFAMETHOXAZOLE\TRIMETHOPRIM
     Indication: ANTIBIOTIC THERAPY
     Dosage: 1 DF, QD
     Route: 048
     Dates: end: 20161001
  8. CANCIDAS [Suspect]
     Active Substance: CASPOFUNGIN ACETATE
     Indication: ASPERGILLUS INFECTION
     Dosage: 100 MG, QD
     Route: 042
     Dates: start: 201607, end: 20161001
  9. ARAVA [Suspect]
     Active Substance: LEFLUNOMIDE
     Indication: SARCOIDOSIS
     Dosage: 1 DF (20 MG), QD
     Route: 048
     Dates: end: 20161001
  10. CORTANCYL [Suspect]
     Active Substance: PREDNISONE
     Indication: SARCOIDOSIS
     Dosage: 10 MG, QD
     Route: 048
     Dates: end: 20161001
  11. INEXIUM (ESOMEPRAZOLE SODIUM) [Suspect]
     Active Substance: ESOMEPRAZOLE SODIUM
     Indication: HIATUS HERNIA
     Dosage: 1 DF (40 MG), QD
     Route: 048
     Dates: end: 20161001

REACTIONS (6)
  - Loss of consciousness [Recovered/Resolved]
  - Paraesthesia [Recovered/Resolved]
  - Seizure [Recovered/Resolved]
  - Hemiplegia [Recovered/Resolved]
  - Amaurosis [Recovered/Resolved]
  - Craniocerebral injury [Recovered/Resolved]

NARRATIVE: CASE EVENT DATE: 20161001
